FAERS Safety Report 5814667-4 (Version None)
Quarter: 2008Q3

REPORT INFORMATION
  Report Type: 
  Country: None (occurrence: None)
  Receive Date: 20080718
  Receipt Date: 20080305
  Transmission Date: 20090109
  Serious: No
  Sender: FDA-Public Use
  Company Number: US-KINGPHARMUSA00001-K200800286

PATIENT

DRUGS (1)
  1. LEVOXYL [Suspect]
     Indication: HYPOTHYROIDISM
     Dosage: 88 MCG, QD
     Route: 048
     Dates: start: 20070601

REACTIONS (5)
  - ALOPECIA [None]
  - BLOOD CREATININE DECREASED [None]
  - POLLAKIURIA [None]
  - SPECIFIC GRAVITY URINE ABNORMAL [None]
  - THIRST [None]
